FAERS Safety Report 14577687 (Version 1)
Quarter: 2018Q1

REPORT INFORMATION
  Report Type: Spontaneous
  Country: US (occurrence: US)
  Receive Date: 20180226
  Receipt Date: 20180226
  Transmission Date: 20180509
  Serious: No
  Sender: FDA-Public Use
  Company Number: None

PATIENT
  Age: 11 Year
  Sex: Male
  Weight: 53.1 kg

DRUGS (6)
  1. XOPENEX [Concomitant]
     Active Substance: LEVALBUTEROL HYDROCHLORIDE
  2. NASAL SALINE [Concomitant]
     Active Substance: SODIUM CHLORIDE
  3. MULTIVITAMIN [Concomitant]
     Active Substance: VITAMINS
  4. OSELTAMIVIR PHOSPHATE CAPSULES USP [Suspect]
     Active Substance: OSELTAMIVIR PHOSPHATE
     Indication: ANTIVIRAL PROPHYLAXIS
     Dosage: ?          QUANTITY:1 CAPSULE(S);?
     Route: 048
     Dates: start: 20180217, end: 20180225
  5. VITAMIN D [Concomitant]
     Active Substance: CHOLECALCIFEROL
  6. SYMBICORT [Concomitant]
     Active Substance: BUDESONIDE\FORMOTEROL FUMARATE DIHYDRATE

REACTIONS (9)
  - Anxiety [None]
  - Fear [None]
  - Hallucination, visual [None]
  - Moaning [None]
  - Nightmare [None]
  - Pallor [None]
  - Malaise [None]
  - Crying [None]
  - Abnormal dreams [None]

NARRATIVE: CASE EVENT DATE: 20180225
